FAERS Safety Report 16476838 (Version 2)
Quarter: 2019Q3

REPORT INFORMATION
  Report Type: Spontaneous
  Country: VN (occurrence: VN)
  Receive Date: 20190626
  Receipt Date: 20190708
  Transmission Date: 20191004
  Serious: Yes (Death, Other)
  Sender: FDA-Public Use
  Company Number: VN-ROCHE-2340014

PATIENT
  Age: 36 Year
  Sex: Female

DRUGS (6)
  1. IRINOTECAN [Suspect]
     Active Substance: IRINOTECAN
     Indication: OFF LABEL USE
  2. AVASTIN [Suspect]
     Active Substance: BEVACIZUMAB
     Indication: RECTAL ADENOCARCINOMA
     Dosage: AS A PART OF XELIRI + BEVACIZUMAB REGIMEN, 2 FIRST CYCLES
     Route: 042
     Dates: start: 2018
  3. XELODA [Suspect]
     Active Substance: CAPECITABINE
     Indication: OFF LABEL USE
     Dosage: 850 MG TWICE DAILY FOR 2 WEEKS FROM DAY 1 TO DAY 14, AS A PART OF XELIRI + BEVACIZUMAB REGIMEN
     Route: 048
     Dates: start: 2018, end: 201905
  4. IRINOTECAN [Suspect]
     Active Substance: IRINOTECAN
     Indication: RECTAL ADENOCARCINOMA
     Dosage: AS A PART OF XELIRI + BEVACIZUMAB REGIMEN
     Route: 042
     Dates: start: 2018, end: 201905
  5. XELODA [Suspect]
     Active Substance: CAPECITABINE
     Indication: RECTAL ADENOCARCINOMA
     Route: 048
     Dates: end: 201808
  6. AVASTIN [Suspect]
     Active Substance: BEVACIZUMAB
     Indication: OFF LABEL USE
     Dosage: AS PART OF XELIRI+BEVACIZUMAB REGIMEN, LAST 6 CYCLES
     Route: 042
     Dates: end: 201905

REACTIONS (7)
  - Back pain [Unknown]
  - Off label use [Unknown]
  - Cachexia [Fatal]
  - Intestinal obstruction [Unknown]
  - Intentional product use issue [Unknown]
  - Chest pain [Unknown]
  - Pleural effusion [Unknown]

NARRATIVE: CASE EVENT DATE: 20190527
